FAERS Safety Report 21419769 (Version 1)
Quarter: 2022Q4

REPORT INFORMATION
  Report Type: Spontaneous
  Country: US (occurrence: None)
  Receive Date: 20221005
  Receipt Date: 20221005
  Transmission Date: 20230112
  Serious: No
  Sender: FDA-Public Use
  Company Number: None

PATIENT
  Age: 59 Year
  Sex: Female

DRUGS (14)
  1. OCREVUS [Suspect]
     Active Substance: OCRELIZUMAB
     Indication: Multiple sclerosis
     Dosage: OTHER QUANTITY : 300MG/10ML;?OTHER FREQUENCY : DAY 1 AND DAY 15;?
     Route: 042
  2. AMLODIPINE TAB [Concomitant]
  3. B-12 TAB [Concomitant]
  4. C-500 CHW [Concomitant]
  5. CITALOPRAM TAB [Concomitant]
  6. FISH OIL CAP [Concomitant]
  7. HYDROCHLOROT TAB [Concomitant]
  8. NEXIUM CAP [Concomitant]
  9. NORVASC TAB [Concomitant]
  10. REBIF [Concomitant]
     Active Substance: INTERFERON BETA-1A
  11. REBIF REBIDO INJ [Concomitant]
  12. REBIF [Concomitant]
     Active Substance: INTERFERON BETA-1A
  13. VITAMIN C CHW [Concomitant]
  14. VITAMIN D CAP [Concomitant]

REACTIONS (1)
  - Seizure [None]

NARRATIVE: CASE EVENT DATE: 20220829
